FAERS Safety Report 8535348-2 (Version None)
Quarter: 2012Q3

REPORT INFORMATION
  Report Type: 
  Country: None (occurrence: None)
  Receive Date: 20120725
  Receipt Date: 20120716
  Transmission Date: 20120928
  Serious: No
  Sender: FDA-Public Use
  Company Number: US-BIOGENIDEC-2012BI025834

PATIENT
  Age: 53 Year
  Sex: Female

DRUGS (2)
  1. TYLENOL [Concomitant]
     Indication: PREMEDICATION
     Dates: start: 20120701
  2. TYSABRI [Suspect]
     Indication: MULTIPLE SCLEROSIS
     Route: 042
     Dates: start: 20120515

REACTIONS (1)
  - INFUSION RELATED REACTION [None]
